FAERS Safety Report 8110075-4 (Version None)
Quarter: 2012Q1

REPORT INFORMATION
  Report Type: 
  Country: None (occurrence: None)
  Receive Date: 20120202
  Receipt Date: 20120124
  Transmission Date: 20120608
  Serious: No
  Sender: FDA-Public Use
  Company Number: US-AMGEN-USASP2012004951

PATIENT
  Age: 58 Year
  Sex: Male

DRUGS (3)
  1. TREXALL [Concomitant]
     Dosage: UNK MG, 6 TABLETS A WEEK
     Dates: start: 20070101
  2. PLAQUENIL [Concomitant]
     Dosage: 2 MG, QD
     Dates: start: 20070101
  3. ENBREL [Suspect]
     Indication: RHEUMATOID ARTHRITIS
     Dosage: 50 MG, Q2WK
     Dates: start: 20110901

REACTIONS (2)
  - ARTHRALGIA [None]
  - MUSCULOSKELETAL STIFFNESS [None]
